FAERS Safety Report 4616357-2 (Version None)
Quarter: 2005Q1

REPORT INFORMATION
  Report Type: 
  Country: None (occurrence: None)
  Receive Date: 20050321
  Receipt Date: 20050308
  Transmission Date: 20050727
  Serious: No
  Sender: FDA-Public Use
  Company Number: 03-000104

PATIENT
  Age: 51 Year
  Sex: Female
  Weight: 86.2 kg

DRUGS (5)
  1. DORYX [Suspect]
     Dosage: 100 MG, BID, ORAL
     Route: 048
     Dates: start: 20030605, end: 20030613
  2. NEXIUM [Suspect]
     Indication: GASTROOESOPHAGEAL REFLUX DISEASE
     Dosage: QD, ORAL
     Route: 048
     Dates: start: 20030701, end: 20030901
  3. ZELNORM [Suspect]
     Indication: IRRITABLE BOWEL SYNDROME
     Dosage: 6 MG, BID, ORAL
     Route: 048
     Dates: start: 20030709, end: 20030901
  4. MEDROL [Concomitant]
  5. LEVOXYL [Concomitant]

REACTIONS (3)
  - ABDOMINAL PAIN LOWER [None]
  - CUTANEOUS LUPUS ERYTHEMATOSUS [None]
  - STOMACH DISCOMFORT [None]
